FAERS Safety Report 6536593-8 (Version None)
Quarter: 2010Q1

REPORT INFORMATION
  Report Type: 
  Country: None (occurrence: None)
  Receive Date: 20100113
  Receipt Date: 20100101
  Transmission Date: 20100710
  Serious: Yes (Hospitalization, Other)
  Sender: FDA-Public Use
  Company Number: HR-PFIZER INC-2010001460

PATIENT
  Age: 56 Year
  Sex: Male

DRUGS (2)
  1. SILDENAFIL CITRATE [Suspect]
     Dosage: 100 MG, UNK
  2. CARBIDOPA AND LEVODOPA [Suspect]
     Dosage: UNK

REACTIONS (4)
  - ANXIETY [None]
  - CHOREOATHETOSIS [None]
  - DRUG INTERACTION [None]
  - MEDICATION ERROR [None]
